FAERS Safety Report 5511070-1 (Version None)
Quarter: 2007Q4

REPORT INFORMATION
  Report Type: 
  Country: None (occurrence: None)
  Receive Date: 20071107
  Receipt Date: 20071022
  Transmission Date: 20080405
  Serious: Yes (Hospitalization)
  Sender: FDA-Public Use
  Company Number: 1-15470401

PATIENT
  Age: 50 Year
  Sex: Male

DRUGS (1)
  1. METHYLPREDNISOLONE [Suspect]
     Indication: ANKYLOSING SPONDYLITIS
     Dosage: 4MG DAILY, ORAL
     Route: 048

REACTIONS (6)
  - ABASIA [None]
  - ARTHRITIS INFECTIVE [None]
  - GRANULOMA [None]
  - MYCOBACTERIUM CHELONEI INFECTION [None]
  - SKIN ATROPHY [None]
  - SUBCUTANEOUS ABSCESS [None]
